FAERS Safety Report 4415259-4 (Version None)
Quarter: 2004Q3

REPORT INFORMATION
  Report Type: 
  Country: None (occurrence: None)
  Receive Date: 20040804
  Receipt Date: 20040609
  Transmission Date: 20050211
  Serious: Yes (Disabling)
  Sender: FDA-Public Use
  Company Number: US-BRISTOL-MYERS SQUIBB COMPANY-12610846

PATIENT
  Age: 41 Year
  Sex: Male
  Weight: 117 kg

DRUGS (7)
  1. ERBITUX [Suspect]
     Indication: COLON CANCER METASTATIC
     Dosage: INITIAL DOSE 960MG 31-MAR-04, REC'D 7 ADD. TREATMENTS WEEKLY OF 600MG UNTIL 18MAY04
     Route: 042
     Dates: start: 20040101, end: 20040101
  2. BENADRYL [Concomitant]
     Indication: PREMEDICATION
     Dosage: REPORTED INITIALLY AS 50 MG AND 25 MG IN F/U
     Route: 042
  3. ALOXI [Concomitant]
     Indication: PREMEDICATION
     Route: 042
  4. DECADRON [Concomitant]
     Indication: PREMEDICATION
     Route: 042
  5. CPT-11 [Concomitant]
     Dosage: GIVEN EVERY 3 WEEKS
  6. PROCRIT [Concomitant]
  7. NEULASTA [Concomitant]

REACTIONS (8)
  - ACNE [None]
  - DIARRHOEA [None]
  - DISCOMFORT [None]
  - ERYTHEMA [None]
  - FATIGUE [None]
  - INFLAMMATION LOCALISED [None]
  - NAUSEA [None]
  - SKIN CHAPPED [None]
